FAERS Safety Report 23642241 (Version 5)
Quarter: 2024Q2

REPORT INFORMATION
  Report Type: Other
  Country: US (occurrence: None)
  Receive Date: 20240318
  Receipt Date: 20240529
  Transmission Date: 20240716
  Serious: Yes (Hospitalization, Other)
  Sender: FDA-Public Use
  Company Number: US-ROCHE-3525166

PATIENT

DRUGS (3)
  1. XOLAIR [Suspect]
     Active Substance: OMALIZUMAB
     Indication: Mast cell activation syndrome
     Route: 065
  2. XOLAIR [Suspect]
     Active Substance: OMALIZUMAB
     Route: 065
  3. METHACHOLINE [Concomitant]
     Active Substance: METHACHOLINE

REACTIONS (22)
  - Angioedema [Unknown]
  - Anaphylactic reaction [Unknown]
  - Dyspnoea [Not Recovered/Not Resolved]
  - Burns second degree [Not Recovered/Not Resolved]
  - Skin burning sensation [Not Recovered/Not Resolved]
  - Papule [Recovered/Resolved]
  - Pain [Not Recovered/Not Resolved]
  - Impaired gastric emptying [Unknown]
  - Arthralgia [Unknown]
  - Pyrexia [Unknown]
  - Chills [Unknown]
  - Burning sensation [Unknown]
  - Hypotension [Unknown]
  - Bladder disorder [Unknown]
  - Sinus disorder [Unknown]
  - Dry mouth [Unknown]
  - Dry eye [Unknown]
  - Insomnia [Unknown]
  - Small fibre neuropathy [Unknown]
  - Urticaria chronic [Unknown]
  - Swollen tongue [Unknown]
  - Antinuclear antibody positive [Unknown]

NARRATIVE: CASE EVENT DATE: 20231101
